FAERS Safety Report 8541757-8 (Version None)
Quarter: 2012Q3

REPORT INFORMATION
  Report Type: 
  Country: None (occurrence: None)
  Receive Date: 20120726
  Receipt Date: 20110830
  Transmission Date: 20120928
  Serious: No
  Sender: FDA-Public Use
  Company Number: US-ASTRAZENECA-2011SE52094

PATIENT
  Age: 26 Year
  Sex: Female
  Weight: 72.6 kg

DRUGS (2)
  1. SEROQUEL [Suspect]
     Indication: SOMNOLENCE
     Route: 048
     Dates: start: 20060101
  2. YASMAN BIRTH CONTROL [Concomitant]

REACTIONS (5)
  - DRUG DOSE OMISSION [None]
  - WEIGHT INCREASED [None]
  - INSOMNIA [None]
  - TACHYPHRENIA [None]
  - ABNORMAL BEHAVIOUR [None]
